FAERS Safety Report 14677038 (Version 1)
Quarter: 2018Q1

REPORT INFORMATION
  Report Type: Spontaneous
  Country: PK (occurrence: PK)
  Receive Date: 20180324
  Receipt Date: 20180324
  Transmission Date: 20180509
  Serious: Yes (Life-Threatening)
  Sender: FDA-Public Use
  Company Number: PK-ABBVIE-18S-124-2261656-00

PATIENT
  Age: 50 Year
  Sex: Female
  Weight: 60 kg

DRUGS (1)
  1. FORANE [Suspect]
     Active Substance: ISOFLURANE
     Indication: MAINTENANCE OF ANAESTHESIA
     Dosage: CONTINUOUS
     Route: 055
     Dates: start: 20180131, end: 20180131

REACTIONS (3)
  - Heart rate increased [Recovered/Resolved]
  - Hypertension [Recovered/Resolved]
  - Suspected counterfeit product [Unknown]

NARRATIVE: CASE EVENT DATE: 20180131
